FAERS Safety Report 6136411-6 (Version None)
Quarter: 2009Q1

REPORT INFORMATION
  Report Type: 
  Country: None (occurrence: None)
  Receive Date: 20090330
  Receipt Date: 20090318
  Transmission Date: 20090719
  Serious: Yes (Death)
  Sender: FDA-Public Use
  Company Number: JP-WYE-H08632809

PATIENT

DRUGS (3)
  1. ZOSYN [Suspect]
     Indication: PNEUMONIA
     Route: 041
  2. LOXONIN [Concomitant]
     Indication: DRUG USE FOR UNKNOWN INDICATION
     Dosage: UNKNOWN
     Route: 048
  3. TARCEVA [Suspect]
     Indication: LUNG NEOPLASM MALIGNANT
     Dosage: UNKNOWN
     Route: 048

REACTIONS (1)
  - RENAL FAILURE ACUTE [None]
